FAERS Safety Report 7072766-6 (Version None)
Quarter: 2010Q4

REPORT INFORMATION
  Report Type: 
  Country: None (occurrence: None)
  Receive Date: 20101029
  Receipt Date: 20100413
  Transmission Date: 20110411
  Serious: No
  Sender: FDA-Public Use
  Company Number: A0849516A

PATIENT
  Age: 82 Year
  Sex: Female
  Weight: 50.9 kg

DRUGS (8)
  1. ADVAIR DISKUS 100/50 [Suspect]
     Indication: CHRONIC OBSTRUCTIVE PULMONARY DISEASE
     Dosage: 1PUFF TWICE PER DAY
     Route: 055
     Dates: start: 20091001, end: 20100209
  2. SPIRIVA [Concomitant]
  3. VASOTEC [Concomitant]
  4. LIPITOR [Concomitant]
  5. ACIPHEX [Concomitant]
  6. CARAFATE [Concomitant]
  7. ASPIRIN [Concomitant]
  8. CLARITIN [Concomitant]

REACTIONS (3)
  - DRY MOUTH [None]
  - DRY THROAT [None]
  - NASAL DRYNESS [None]
